FAERS Safety Report 25674397 (Version 2)
Quarter: 2025Q3

REPORT INFORMATION
  Report Type: Spontaneous
  Country: US (occurrence: US)
  Receive Date: 20250813
  Receipt Date: 20250829
  Transmission Date: 20251020
  Serious: Yes (Hospitalization)
  Sender: TEVA
  Company Number: US-TEVA-VS-3360325

PATIENT
  Age: 77 Year
  Sex: Female

DRUGS (1)
  1. NITROFURANTOIN [Suspect]
     Active Substance: NITROFURANTOIN
     Indication: Urinary tract infection
     Route: 065

REACTIONS (4)
  - Interstitial lung disease [Recovering/Resolving]
  - Chronic respiratory failure [Recovering/Resolving]
  - Pneumomediastinum [Recovering/Resolving]
  - Pneumothorax [Recovering/Resolving]
